FAERS Safety Report 6611454-4 (Version None)
Quarter: 2010Q1

REPORT INFORMATION
  Report Type: 
  Country: None (occurrence: None)
  Receive Date: 20100303
  Receipt Date: 20100225
  Transmission Date: 20100710
  Serious: Yes (Other)
  Sender: FDA-Public Use
  Company Number: US-SANOFI-AVENTIS-2010SA010912

PATIENT
  Age: 80 Year
  Sex: Female

DRUGS (14)
  1. MULTAQ [Suspect]
     Route: 048
     Dates: start: 20100128, end: 20100217
  2. CARDIZEM [Concomitant]
     Dates: end: 20100101
  3. CARDIZEM [Concomitant]
     Dates: start: 20100101
  4. COUMADIN [Concomitant]
  5. MULTIVITAMIN [Concomitant]
  6. FEMARA [Concomitant]
  7. PRAVASTATIN [Concomitant]
  8. SIMVASTATIN [Concomitant]
     Dates: end: 20100101
  9. LASIX [Concomitant]
  10. TOPROL-XL [Concomitant]
     Dates: end: 20100101
  11. TOPROL-XL [Concomitant]
     Dates: start: 20100101
  12. CALCIUM [Concomitant]
  13. VITAMIN D [Concomitant]
  14. ASPIRIN [Concomitant]

REACTIONS (9)
  - CARDIAC FAILURE CONGESTIVE [None]
  - COUGH [None]
  - DIZZINESS [None]
  - DYSPNOEA [None]
  - FATIGUE [None]
  - PALPITATIONS [None]
  - SWELLING [None]
  - WEIGHT INCREASED [None]
  - WHEEZING [None]
